FAERS Safety Report 7647011-0 (Version None)
Quarter: 2011Q3

REPORT INFORMATION
  Report Type: 
  Country: None (occurrence: None)
  Receive Date: 20110729
  Receipt Date: 20110729
  Transmission Date: 20111222
  Serious: No
  Sender: FDA-Public Use
  Company Number: None

PATIENT
  Age: 83 Year
  Sex: Female
  Weight: 92.5338 kg

DRUGS (1)
  1. LANTUS [Suspect]
     Indication: DIABETES MELLITUS
     Dosage: 10 UNITS ONCE ONLY
     Dates: start: 20110617

REACTIONS (5)
  - ALOPECIA [None]
  - SKIN EXFOLIATION [None]
  - SKIN DISCOLOURATION [None]
  - PRURITUS [None]
  - BLOOD GLUCOSE INCREASED [None]
